FAERS Safety Report 6449490-3 (Version None)
Quarter: 2009Q4

REPORT INFORMATION
  Report Type: 
  Country: None (occurrence: None)
  Receive Date: 20091120
  Receipt Date: 20091109
  Transmission Date: 20100525
  Serious: Yes (Other)
  Sender: FDA-Public Use
  Company Number: DE-ELI_LILLY_AND_COMPANY-DE200909002507

PATIENT
  Sex: Female

DRUGS (4)
  1. ZYPREXA [Suspect]
     Indication: DEPRESSION
     Dates: start: 20080327
  2. RISPERIDONE [Concomitant]
     Dosage: UNK, UNK
     Dates: start: 20090101
  3. VENLAFAXINA [Concomitant]
     Dosage: 75 MG, UNK
  4. MIRTAZAPINE [Concomitant]

REACTIONS (11)
  - AGEUSIA [None]
  - DYSARTHRIA [None]
  - EMOTIONAL DISORDER [None]
  - FATIGUE [None]
  - HEADACHE [None]
  - HYPOSMIA [None]
  - INSOMNIA [None]
  - NERVOUSNESS [None]
  - OFF LABEL USE [None]
  - PERSONALITY CHANGE [None]
  - THINKING ABNORMAL [None]
